FAERS Safety Report 7755347-8 (Version None)
Quarter: 2011Q3

REPORT INFORMATION
  Report Type: 
  Country: None (occurrence: None)
  Receive Date: 20110914
  Receipt Date: 20110830
  Transmission Date: 20111222
  Serious: Yes (Hospitalization, Other)
  Sender: FDA-Public Use
  Company Number: CIP11001746

PATIENT
  Age: 68 Year
  Sex: Female
  Weight: 81.2 kg

DRUGS (17)
  1. ACTONEL [Suspect]
     Indication: OSTEOPOROSIS
     Dosage: 35 MG REGIMEN UNKNOWN, ORAL
     Route: 048
     Dates: start: 20030101, end: 20060501
  2. POTASSIUM CHLORIDE [Concomitant]
  3. FUROSEMIDE [Concomitant]
  4. DIOVAN [Concomitant]
  5. ZADITOR (KETOTIFEN) [Concomitant]
  6. FOSAMAX [Suspect]
     Indication: OSTEOPOROSIS
     Dosage: 70 MG REGIMEN UNKNOWN, ORAL
     Route: 048
     Dates: start: 20060517
  7. FOSAMAX [Suspect]
     Indication: OSTEOPOROSIS
     Dosage: 70 MG REGIMEN UNKNOWN, ORAL
     Route: 048
     Dates: start: 20090701, end: 20090717
  8. NORVASC [Concomitant]
  9. ELIDEL [Concomitant]
  10. LIPITOR [Concomitant]
  11. PREDNISONE [Concomitant]
  12. BONIVA [Suspect]
     Indication: OSTEOPOROSIS
     Dosage: 150 MG REGIMEN UNKNOWN, ORAL
     Route: 048
     Dates: start: 20090713, end: 20091001
  13. CELEXA [Concomitant]
  14. ALENDRONATE SODIUM [Suspect]
     Indication: OSTEOPOROSIS
     Dosage: 70 MG REGIMEND UNKNOWN, ORAL
     Route: 048
     Dates: start: 20090423, end: 20090701
  15. EFFEXOR XR [Concomitant]
  16. ZELNORM [Concomitant]
  17. PROTONIX [Concomitant]

REACTIONS (22)
  - PROCEDURAL PAIN [None]
  - MEDICAL DEVICE COMPLICATION [None]
  - PAIN IN EXTREMITY [None]
  - GAIT DEVIATION [None]
  - OPERATIVE HAEMORRHAGE [None]
  - OEDEMA PERIPHERAL [None]
  - INSOMNIA [None]
  - DIZZINESS [None]
  - BLOOD PRESSURE INCREASED [None]
  - GAIT DISTURBANCE [None]
  - FEMUR FRACTURE [None]
  - FRACTURE DISPLACEMENT [None]
  - HAEMOGLOBIN DECREASED [None]
  - NAUSEA [None]
  - PATHOLOGICAL FRACTURE [None]
  - MALAISE [None]
  - BACK PAIN [None]
  - MUSCLE STRAIN [None]
  - GROIN PAIN [None]
  - FALL [None]
  - JOINT EFFUSION [None]
  - MEDICAL DEVICE PAIN [None]
